FAERS Safety Report 6915999-9 (Version None)
Quarter: 2010Q3

REPORT INFORMATION
  Report Type: 
  Country: None (occurrence: None)
  Receive Date: 20100805
  Receipt Date: 20100802
  Transmission Date: 20110219
  Serious: Yes (Other)
  Sender: FDA-Public Use
  Company Number: TRP_07160_2010

PATIENT
  Sex: Female

DRUGS (2)
  1. RIBASPHERE [Suspect]
     Indication: PRODUCT USED FOR UNKNOWN INDICATION
     Dosage: (DF)
  2. PEGASYS [Suspect]
     Indication: PRODUCT USED FOR UNKNOWN INDICATION
     Dosage: (DF)

REACTIONS (11)
  - ALOPECIA [None]
  - CHEST PAIN [None]
  - COUGH [None]
  - DEPRESSION [None]
  - DIZZINESS [None]
  - DYSPNOEA [None]
  - FACE OEDEMA [None]
  - FACIAL PAIN [None]
  - FATIGUE [None]
  - TOOTH DISORDER [None]
  - WEIGHT DECREASED [None]
